FAERS Safety Report 8357931-X (Version None)
Quarter: 2012Q2

REPORT INFORMATION
  Report Type: 
  Country: None (occurrence: None)
  Receive Date: 20120514
  Receipt Date: 20120508
  Transmission Date: 20120825
  Serious: Yes (Other)
  Sender: FDA-Public Use
  Company Number: US-CELGENEUS-163-21880-12022442

PATIENT
  Sex: Female

DRUGS (23)
  1. MULTI FOR HER [Concomitant]
     Route: 065
     Dates: start: 20090108
  2. CELEXA [Concomitant]
     Indication: DEPRESSION
     Dosage: 20 MILLIGRAM
     Route: 065
  3. PREMARIN [Concomitant]
     Dosage: .25 MILLIGRAM
     Route: 067
     Dates: start: 20090108
  4. FLONASE [Concomitant]
     Dosage: 50 MICROGRAM
     Route: 045
  5. DOCUSATE SODIUM [Concomitant]
     Dosage: 1 TABLET
     Route: 048
  6. REVLIMID [Suspect]
     Dosage: 10 MILLIGRAM
     Route: 048
     Dates: start: 20100601, end: 20120227
  7. PROCRIT [Concomitant]
     Route: 065
  8. EXTRA STRENGTH TYLENOL [Concomitant]
     Dosage: 500 MILLIGRAM
     Route: 048
  9. TRANSFUSION [Concomitant]
     Route: 041
  10. ASPIRIN [Concomitant]
     Dosage: 81 MILLIGRAM
     Route: 048
     Dates: start: 20090108
  11. ENABLEX [Concomitant]
     Dosage: 1
     Route: 048
  12. N/M ESSENTIAL MULTI WOMAN [Concomitant]
     Route: 065
     Dates: start: 20090108
  13. KONSYL [Concomitant]
     Route: 065
     Dates: start: 20090108
  14. CITRACAL + D [Concomitant]
     Route: 048
     Dates: start: 20090108
  15. VITAMIN B-12 [Concomitant]
     Dosage: 1000 MICROGRAM
     Route: 048
     Dates: start: 20090108
  16. MURO 128 [Concomitant]
     Dosage: 1 DROPS
     Route: 065
  17. CITALOPRAM HYDROBROMIDE [Concomitant]
     Dosage: 10 MILLIGRAM
     Route: 048
     Dates: start: 20100603
  18. NASONEX [Concomitant]
     Dosage: 50 MICROGRAM
     Route: 045
  19. MULTI-VITAMINS [Concomitant]
     Dosage: 500 MILLIGRAM
     Route: 065
  20. REVLIMID [Suspect]
     Indication: MULTIPLE MYELOMA
     Dosage: 25 MILLIGRAM
     Route: 048
     Dates: start: 20071127, end: 20090921
  21. REVLIMID [Suspect]
     Dosage: 15 MILLIGRAM
     Route: 048
     Dates: start: 20100209
  22. PROTONIX [Concomitant]
     Dosage: 20 MILLIGRAM
     Route: 048
     Dates: start: 20090331
  23. ZOMETA [Concomitant]
     Dosage: 4MG/5ML
     Route: 050
     Dates: start: 20090331

REACTIONS (2)
  - ANAEMIA [None]
  - OSTEOARTHRITIS [None]
